FAERS Safety Report 24029699 (Version 1)
Quarter: 2024Q2

REPORT INFORMATION
  Report Type: Spontaneous
  Country: ZA (occurrence: None)
  Receive Date: 20240628
  Receipt Date: 20240628
  Transmission Date: 20240716
  Serious: Yes (Death)
  Sender: FDA-Public Use
  Company Number: 2024A146958

PATIENT
  Age: 88 Year
  Sex: Male

DRUGS (8)
  1. BUDESONIDE\FORMOTEROL FUMARATE DIHYDRATE [Suspect]
     Active Substance: BUDESONIDE\FORMOTEROL FUMARATE DIHYDRATE
     Indication: Product used for unknown indication
     Dosage: 120 MG UNKNOWN UNKNOWN
     Route: 055
  2. PREDNISONE [Concomitant]
     Active Substance: PREDNISONE
     Route: 048
  3. ZITHROMAX [Concomitant]
     Active Substance: AZITHROMYCIN DIHYDRATE
     Route: 048
  4. PANTOCID [Concomitant]
     Indication: Ulcer
     Route: 048
  5. MONTELUKAST SODIUM [Concomitant]
     Active Substance: MONTELUKAST SODIUM
     Indication: Asthma
     Route: 048
  6. BEZAFIBRATE [Concomitant]
     Active Substance: BEZAFIBRATE
     Indication: Ulcer
     Route: 048
  7. IVABRADINE HYDROCHLORIDE [Concomitant]
     Active Substance: IVABRADINE HYDROCHLORIDE
     Indication: Asthma
     Route: 048
  8. BIO-NIFEDIPINE XL [Concomitant]
     Indication: Blood cholesterol
     Route: 048

REACTIONS (1)
  - Pulmonary fibrosis [Fatal]
